FAERS Safety Report 5751368-5 (Version None)
Quarter: 2008Q2

REPORT INFORMATION
  Report Type: 
  Country: None (occurrence: None)
  Receive Date: 20080528
  Receipt Date: 20080516
  Transmission Date: 20081010
  Serious: Yes (Other)
  Sender: FDA-Public Use
  Company Number: US-PFIZER INC-2008043338

PATIENT
  Sex: Female

DRUGS (1)
  1. CHANTIX [Suspect]

REACTIONS (6)
  - BEDRIDDEN [None]
  - FLATULENCE [None]
  - IMPAIRED WORK ABILITY [None]
  - INFLUENZA [None]
  - MALAISE [None]
  - PYREXIA [None]
